FAERS Safety Report 6763633-3 (Version None)
Quarter: 2010Q2

REPORT INFORMATION
  Report Type: 
  Country: None (occurrence: None)
  Receive Date: 20100610
  Receipt Date: 20100601
  Transmission Date: 20101027
  Serious: Yes (Other)
  Sender: FDA-Public Use
  Company Number: US-B.I. PHARMACEUTICALS,INC./RIDGEFIELD-2010-BP-06148BP

PATIENT
  Age: 54 Year
  Sex: Female
  Weight: 83.5 kg

DRUGS (9)
  1. MOBIC [Suspect]
  2. LIPITOR [Suspect]
     Indication: BLOOD CHOLESTEROL INCREASED
     Route: 048
     Dates: start: 20070918, end: 20100317
  3. NEURONTIN [Suspect]
     Indication: PAIN IN EXTREMITY
  4. VOLTAREN [Suspect]
     Indication: ANTIINFLAMMATORY THERAPY
  5. VOLTAREN [Suspect]
     Indication: MYALGIA
  6. DARVOCET [Suspect]
  7. SYNTHROID [Concomitant]
  8. STEROID INJECTIONS [Concomitant]
     Indication: MUSCULOSKELETAL DISCOMFORT
  9. STEROID INJECTIONS [Concomitant]

REACTIONS (7)
  - ARTHRALGIA [None]
  - DRUG INEFFECTIVE [None]
  - FIBROMYALGIA [None]
  - HEPATIC ENZYME INCREASED [None]
  - MUSCLE SWELLING [None]
  - MYALGIA [None]
  - SURGERY [None]
